FAERS Safety Report 7198185-X (Version None)
Quarter: 2010Q4

REPORT INFORMATION
  Report Type: 
  Country: None (occurrence: None)
  Receive Date: 20101227
  Receipt Date: 20101213
  Transmission Date: 20110411
  Serious: Yes (Other)
  Sender: FDA-Public Use
  Company Number: PHHY2010AR23852

PATIENT
  Sex: Female

DRUGS (2)
  1. DIOVAN HCT [Suspect]
     Indication: HYPERTENSION
     Dosage: (320/12.5 MG) 1 TABLET DAILY, DIVIDED INTO TWO HALFS
     Dates: start: 20100412, end: 20100414
  2. DIOVAN [Suspect]

REACTIONS (9)
  - ABDOMINAL PAIN UPPER [None]
  - BLOOD POTASSIUM DECREASED [None]
  - BLOOD PRESSURE DECREASED [None]
  - BLOOD SODIUM DECREASED [None]
  - CARDIAC PACEMAKER INSERTION [None]
  - DISCOMFORT [None]
  - HEART RATE DECREASED [None]
  - RENAL PAIN [None]
  - RETCHING [None]
